FAERS Safety Report 10393453 (Version 4)
Quarter: 2015Q2

REPORT INFORMATION
  Report Type: Spontaneous
  Country: US (occurrence: US)
  Receive Date: 20140819
  Receipt Date: 20150424
  Transmission Date: 20150821
  Serious: Yes (Death, Hospitalization, Other)
  Sender: FDA-Public Use
  Company Number: US-BAYER-2014-120869

PATIENT
  Age: 37 Year
  Sex: Female

DRUGS (3)
  1. ACETYLSALICYLIC ACID({=100 MG) [Suspect]
     Active Substance: ASPIRIN
     Dosage: UNK UNK, QD
     Dates: start: 2009
  2. PLAVIX [Concomitant]
     Active Substance: CLOPIDOGREL BISULFATE
     Dosage: 75 MG, QD
     Dates: start: 2009
  3. BETASERON [Suspect]
     Active Substance: INTERFERON BETA-1B
     Dosage: UNK
     Dates: start: 1985, end: 1986

REACTIONS (21)
  - Hypotonia [None]
  - Hernia [None]
  - Respiratory failure [Fatal]
  - Myocardial infarction [Fatal]
  - Mobility decreased [None]
  - Drug hypersensitivity [None]
  - Pain [None]
  - Sleep disorder [None]
  - Multiple sclerosis relapse [None]
  - Drug ineffective [None]
  - Tremor [None]
  - Renal disorder [Fatal]
  - Epigastric discomfort [None]
  - Muscle spasticity [None]
  - Anxiety [None]
  - Depression [None]
  - Pneumonia [Fatal]
  - Multiple sclerosis [None]
  - Blood pressure decreased [None]
  - Cardiogenic shock [Fatal]
  - Nausea [None]

NARRATIVE: CASE EVENT DATE: 201410
